FAERS Safety Report 9331786 (Version 1)
Quarter: 2013Q2

REPORT INFORMATION
  Report Type: Report from Study
  Country: MX (occurrence: MX)
  Receive Date: 20130605
  Receipt Date: 20130605
  Transmission Date: 20140414
  Serious: Yes (Other)
  Sender: FDA-Public Use
  Company Number: PHHY2013MX056960

PATIENT
  Sex: Male

DRUGS (1)
  1. RASILEZ HCT [Suspect]
     Indication: HYPERTENSION
     Dosage: 1 DF, (300 MG ALISK/ 12,5 MG HYDRO) DAILY
     Route: 048

REACTIONS (2)
  - Thyroid cancer [Recovered/Resolved]
  - Vocal cord disorder [Recovered/Resolved]
